FAERS Safety Report 11651902 (Version 2)
Quarter: 2015Q4

REPORT INFORMATION
  Report Type: Other
  Country: GB (occurrence: GB)
  Receive Date: 20151022
  Receipt Date: 20151105
  Transmission Date: 20160304
  Serious: Yes (Other)
  Sender: FDA-Public Use
  Company Number: GB-MYLANLABS-2015M1035797

PATIENT

DRUGS (5)
  1. LINAGLIPTIN [Concomitant]
     Active Substance: LINAGLIPTIN
     Dosage: UNK
     Route: 065
  2. METFORMIN [Suspect]
     Active Substance: METFORMIN HYDROCHLORIDE
     Indication: TYPE 2 DIABETES MELLITUS
     Dosage: TWO X 500MG TAKEN PER DAY INITIALLY, BUT WAS GRADUALLY INCREASED
     Route: 065
     Dates: end: 2003
  3. SITAGLIPTIN [Concomitant]
     Active Substance: SITAGLIPTIN
     Dosage: UNK
     Route: 065
  4. METFORMIN [Suspect]
     Active Substance: METFORMIN HYDROCHLORIDE
     Dosage: 500 MG, 6XD
     Route: 065
     Dates: start: 2003, end: 201505
  5. FENOFIBRATE. [Concomitant]
     Active Substance: FENOFIBRATE
     Dosage: UNK
     Route: 065

REACTIONS (6)
  - Renal function test abnormal [Unknown]
  - Red blood cell count decreased [Not Recovered/Not Resolved]
  - Acute myeloid leukaemia [Unknown]
  - Product use issue [Unknown]
  - Bone marrow disorder [Unknown]
  - Off label use [Unknown]

NARRATIVE: CASE EVENT DATE: 20151008
